FAERS Safety Report 18820797 (Version 1)
Quarter: 2021Q1

REPORT INFORMATION
  Report Type: Spontaneous
  Country: US (occurrence: US)
  Receive Date: 20210202
  Receipt Date: 20210202
  Transmission Date: 20210419
  Serious: Yes (Other)
  Sender: FDA-Public Use
  Company Number: None

PATIENT
  Age: 70 Year
  Sex: Male
  Weight: 101.25 kg

DRUGS (3)
  1. 81 MG ASPIRIN [Concomitant]
     Active Substance: ASPIRIN
     Dates: start: 20190929
  2. ROSUVASTATIN. [Concomitant]
     Active Substance: ROSUVASTATIN
     Dates: start: 20200409
  3. BAMLANIVIMAB. [Suspect]
     Active Substance: BAMLANIVIMAB
     Indication: COVID-19
     Dosage: ?          OTHER FREQUENCY:ONCE;?
     Route: 042
     Dates: start: 20210126, end: 20210126

REACTIONS (2)
  - Epistaxis [None]
  - Haemoptysis [None]

NARRATIVE: CASE EVENT DATE: 20210130
